FAERS Safety Report 10067948 (Version 2)
Quarter: 2014Q2

REPORT INFORMATION
  Report Type: Spontaneous
  Country: US (occurrence: US)
  Receive Date: 20140409
  Receipt Date: 20140513
  Transmission Date: 20141212
  Serious: No
  Sender: FDA-Public Use
  Company Number: US-009507513-1403USA007576

PATIENT
  Age: 22 Year
  Sex: Female
  Weight: 53.52 kg

DRUGS (3)
  1. NUVARING [Suspect]
     Indication: HAEMOSTASIS
     Dosage: 1 WEEK FOR 4 WEEKS THEN A NEW RING AWAY FOR 3 MONTHS THEN HAVE A PERIOD
     Route: 067
     Dates: start: 2011
  2. NUVARING [Suspect]
     Indication: ENDOMETRIOSIS
  3. NUVARING [Suspect]
     Indication: CONTRACEPTION

REACTIONS (3)
  - Menorrhagia [Not Recovered/Not Resolved]
  - Incorrect drug administration duration [Unknown]
  - Off label use [Unknown]
